FAERS Safety Report 13007034 (Version 1)
Quarter: 2016Q4

REPORT INFORMATION
  Report Type: Spontaneous
  Country: US (occurrence: US)
  Receive Date: 20161207
  Receipt Date: 20161207
  Transmission Date: 20170207
  Serious: No
  Sender: FDA-Public Use
  Company Number: US-SHIRE-US201618090

PATIENT
  Age: 20 Year
  Sex: Male

DRUGS (2)
  1. FOSRENOL [Suspect]
     Active Substance: LANTHANUM CARBONATE
     Indication: BLOOD PHOSPHORUS ABNORMAL
  2. FOSRENOL [Suspect]
     Active Substance: LANTHANUM CARBONATE
     Indication: END STAGE RENAL DISEASE
     Dosage: 2000 MG (TWO 1000 MG), OTHER (WITH EACH MEAL)
     Route: 048
     Dates: start: 201611, end: 201611

REACTIONS (5)
  - Oral administration complication [Recovered/Resolved]
  - Product quality issue [Recovered/Resolved]
  - Sensitivity of teeth [Unknown]
  - Condition aggravated [Unknown]
  - Gingival pain [Unknown]

NARRATIVE: CASE EVENT DATE: 201611
